FAERS Safety Report 5295742-2 (Version None)
Quarter: 2007Q2

REPORT INFORMATION
  Report Type: 
  Country: None (occurrence: None)
  Receive Date: 20070413
  Receipt Date: 20070403
  Transmission Date: 20071010
  Serious: Yes (Hospitalization)
  Sender: FDA-Public Use
  Company Number: US-JNJFOC-20070401112

PATIENT
  Sex: Male
  Weight: 99.79 kg

DRUGS (9)
  1. DURAGESIC-100 [Suspect]
     Route: 062
  2. DURAGESIC-100 [Suspect]
     Route: 062
  3. DURAGESIC-100 [Suspect]
     Indication: PAIN
     Route: 062
  4. ESGIC [Concomitant]
     Indication: MIGRAINE
  5. DICYCLOMINE [Concomitant]
     Indication: DIVERTICULUM
  6. OXY IR [Concomitant]
     Indication: PAIN
  7. LUMIGAN [Concomitant]
     Indication: GLAUCOMA
  8. IBUPROFEN [Concomitant]
     Indication: INFLAMMATION
  9. IBUPROFEN [Concomitant]
     Indication: PAIN

REACTIONS (11)
  - CIRCADIAN RHYTHM SLEEP DISORDER [None]
  - DEEP VEIN THROMBOSIS [None]
  - DRUG WITHDRAWAL SYNDROME [None]
  - GASTROINTESTINAL INFECTION [None]
  - INAPPROPRIATE SCHEDULE OF DRUG ADMINISTRATION [None]
  - INTRAOCULAR PRESSURE INCREASED [None]
  - PRURITUS GENITAL [None]
  - RIB FRACTURE [None]
  - SCROTAL DISORDER [None]
  - THERAPEUTIC RESPONSE DECREASED [None]
  - WRONG TECHNIQUE IN DRUG USAGE PROCESS [None]
